FAERS Safety Report 9581396 (Version 2)
Quarter: 2013Q4

REPORT INFORMATION
  Report Type: Spontaneous
  Country: US (occurrence: US)
  Receive Date: 20131002
  Receipt Date: 20131025
  Transmission Date: 20140711
  Serious: No
  Sender: FDA-Public Use
  Company Number: US-009507513-1310USA001303

PATIENT
  Sex: Male
  Weight: 90.7 kg

DRUGS (1)
  1. LOTRIMIN ULTRA [Suspect]
     Indication: FUNGAL INFECTION
     Dosage: UNK UNK, PRN
     Route: 061
     Dates: start: 2011

REACTIONS (1)
  - Drug ineffective [Unknown]
